FAERS Safety Report 23652870 (Version 1)
Quarter: 2024Q1

REPORT INFORMATION
  Report Type: Spontaneous
  Country: ES (occurrence: ES)
  Receive Date: 20240320
  Receipt Date: 20240320
  Transmission Date: 20240410
  Serious: Yes (Other)
  Sender: FDA-Public Use
  Company Number: None

PATIENT
  Age: 60 Year
  Sex: Male
  Weight: 103 kg

DRUGS (15)
  1. ETOPOSIDE [Suspect]
     Active Substance: ETOPOSIDE
     Indication: B-cell lymphoma
     Dosage: TIME INTERVAL: CYCLICAL: CYCLE 3 (200 MG/DAY IV THE FIRST 3 DAYS OF EACH CYCLE, 21-DAY CYCLES)
     Route: 042
     Dates: start: 20210811, end: 20210813
  2. ETOPOSIDE [Suspect]
     Active Substance: ETOPOSIDE
     Indication: B-cell lymphoma
     Dosage: TIME INTERVAL: CYCLICAL: CYCLE 2 (200 MG/DAY IV THE FIRST 3 DAYS OF EACH CYCLE, 21-DAY CYCLES)
     Route: 042
     Dates: start: 20210625, end: 20210627
  3. ETOPOSIDE [Suspect]
     Active Substance: ETOPOSIDE
     Indication: B-cell lymphoma
     Dosage: TIME INTERVAL: CYCLICAL: CYCLE 1 (200 MG/DAY IV THE FIRST 3 DAYS OF EACH CYCLE, 21-DAY CYCLES)? (...
     Route: 042
     Dates: start: 20210604, end: 20210606
  4. RITUXIMAB [Suspect]
     Active Substance: RITUXIMAB
     Indication: B-cell lymphoma
     Dosage: TIME INTERVAL: CYCLICAL: CYCLE 2 (750 MG IV ON THE FIRST DAY OF THE CYCLE, CYCLES EVERY 21 DAYS)
     Route: 042
     Dates: start: 20210625, end: 20210625
  5. RITUXIMAB [Suspect]
     Active Substance: RITUXIMAB
     Indication: B-cell lymphoma
     Dosage: TIME INTERVAL: CYCLICAL: CYCLE 3 (750 MG IV ON THE FIRST DAY OF THE CYCLE, CYCLES EVERY 21 DAYS)
     Route: 042
     Dates: start: 20210811, end: 20210811
  6. RITUXIMAB [Suspect]
     Active Substance: RITUXIMAB
     Indication: B-cell lymphoma
     Dosage: TIME INTERVAL: CYCLICAL: CYCLE 1 (750 MG IV ON THE FIRST DAY, CYCLED EVERY 21 DAYS)?(2814A)
     Route: 042
     Dates: start: 20210604, end: 20210604
  7. POLATUZUMAB VEDOTIN [Suspect]
     Active Substance: POLATUZUMAB VEDOTIN
     Indication: B-cell lymphoma
     Dosage: TIME INTERVAL: CYCLICAL: CYCLE 2 (227 MG IV FIRST DAY OF EACH CYCLE, 21 DAY CYCLES)
     Route: 042
     Dates: start: 20210625, end: 20210625
  8. POLATUZUMAB VEDOTIN [Suspect]
     Active Substance: POLATUZUMAB VEDOTIN
     Indication: B-cell lymphoma
     Dosage: TIME INTERVAL: CYCLICAL: CYCLE 3 (227 MG IV FIRST DAY OF EACH CYCLE, 21 DAY CYCLES)
     Route: 042
     Dates: start: 20210811, end: 20210811
  9. POLATUZUMAB VEDOTIN [Suspect]
     Active Substance: POLATUZUMAB VEDOTIN
     Indication: B-cell lymphoma
     Dosage: TIME INTERVAL: CYCLICAL: CYCLE 1 (227 MG IV FIRST DAY OF EACH CYCLE, 21 DAY CYCLES)?(9519A)
     Route: 042
     Dates: start: 20210604, end: 20210604
  10. CARBOPLATIN [Suspect]
     Active Substance: CARBOPLATIN
     Indication: B-cell lymphoma
     Dosage: TIME INTERVAL: CYCLICAL: CYCLE 1 (738 MG IV ON 2ND DAY OF CYCLE, 21-DAY CYCLES)? (2323A)
     Route: 042
     Dates: start: 20210605, end: 20210605
  11. CARBOPLATIN [Suspect]
     Active Substance: CARBOPLATIN
     Indication: B-cell lymphoma
     Dosage: TIME INTERVAL: CYCLICAL: CYCLE 2 (625 MG IV ON 2ND DAY OF CYCLE, 21-DAY CYCLES)
     Route: 042
     Dates: start: 20210626, end: 20210626
  12. CARBOPLATIN [Suspect]
     Active Substance: CARBOPLATIN
     Indication: B-cell lymphoma
     Dosage: TIME INTERVAL: CYCLICAL: CYCLE 3 (625 MG IV ON 2ND DAY OF CYCLE, 21-DAY CYCLES)
     Route: 042
     Dates: start: 20210812, end: 20210812
  13. IFOSFAMIDE [Suspect]
     Active Substance: IFOSFAMIDE
     Indication: B-cell lymphoma
     Dosage: TIME INTERVAL: CYCLICAL: CYCLE 1 (1000 MG IV ON THE 2ND DAY OF THE CYCLE, CYCLES EVERY 21 DAYS)?(...
     Route: 042
     Dates: start: 20210605, end: 20210605
  14. IFOSFAMIDE [Suspect]
     Active Substance: IFOSFAMIDE
     Indication: B-cell lymphoma
     Dosage: TIME INTERVAL: CYCLICAL: CYCLE 3 (DOSE REDUCTION TO 750 MG IV ON 2ND DAY OF CYCLE, CYCLES EVERY 2...
     Route: 042
     Dates: start: 20210812, end: 20210812
  15. IFOSFAMIDE [Suspect]
     Active Substance: IFOSFAMIDE
     Indication: B-cell lymphoma
     Dosage: TIME INTERVAL: CYCLICAL: CYCLE 2 (1000 MG IV ON THE 2ND DAY OF THE CYCLE, CYCLES EVERY 21 DAYS)
     Route: 042
     Dates: start: 20210626, end: 20210626

REACTIONS (2)
  - Ejection fraction decreased [Recovered/Resolved]
  - Cardiotoxicity [Recovered/Resolved]

NARRATIVE: CASE EVENT DATE: 20210701
